FAERS Safety Report 14416746 (Version 2)
Quarter: 2018Q1

REPORT INFORMATION
  Report Type: Spontaneous
  Country: US (occurrence: US)
  Receive Date: 20180122
  Receipt Date: 20180302
  Transmission Date: 20180509
  Serious: Yes (Death, Hospitalization, Other)
  Sender: FDA-Public Use
  Company Number: US-ASTELLAS-2018US001570

PATIENT
  Age: 28 Year
  Sex: Female

DRUGS (3)
  1. CRESEMBA [Suspect]
     Active Substance: ISAVUCONAZONIUM SULFATE
     Indication: INFECTION PROPHYLAXIS
     Dosage: UNK UNK, UNKNOWN FREQ.
     Route: 042
     Dates: start: 20170414
  2. CRESEMBA [Suspect]
     Active Substance: ISAVUCONAZONIUM SULFATE
     Dosage: UNK UNK, UNKNOWN FREQ.
     Route: 042
     Dates: start: 20170624
  3. CRESEMBA [Suspect]
     Active Substance: ISAVUCONAZONIUM SULFATE
     Dosage: UNK UNK, UNKNOWN FREQ.
     Route: 048
     Dates: start: 20170621

REACTIONS (14)
  - Alternaria infection [Unknown]
  - Paranasal sinus haemorrhage [Unknown]
  - Escherichia bacteraemia [Unknown]
  - Transplant rejection [Unknown]
  - Alternaria infection [Unknown]
  - Mucosal hypertrophy [Unknown]
  - Sinus pain [Unknown]
  - Facial pain [Unknown]
  - Multiple organ dysfunction syndrome [Fatal]
  - Cellulitis [Unknown]
  - Urinary tract infection [Unknown]
  - Pneumonia klebsiella [Unknown]
  - Drug intolerance [Unknown]
  - Off label use [Unknown]

NARRATIVE: CASE EVENT DATE: 20170624
